APPROVED DRUG PRODUCT: PROMETHAZINE W/ CODEINE
Active Ingredient: CODEINE PHOSPHATE; PROMETHAZINE HYDROCHLORIDE
Strength: 10MG/5ML;6.25MG/5ML
Dosage Form/Route: SYRUP;ORAL
Application: A088814 | Product #001
Applicant: HR CENCI LABORATORIES INC
Approved: Nov 22, 1985 | RLD: No | RS: No | Type: DISCN